FAERS Safety Report 5245727-7 (Version None)
Quarter: 2007Q1

REPORT INFORMATION
  Report Type: 
  Country: None (occurrence: None)
  Receive Date: 20070223
  Receipt Date: 20070213
  Transmission Date: 20070707
  Serious: Yes (Other)
  Sender: FDA-Public Use
  Company Number: US-PFIZER INC-2007012514

PATIENT
  Sex: Female
  Weight: 107 kg

DRUGS (12)
  1. LYRICA [Suspect]
     Indication: DIABETES MELLITUS
  2. LYRICA [Suspect]
     Indication: PARAESTHESIA
  3. METOCLOPRAMIDE [Concomitant]
  4. NOVOLOG [Concomitant]
  5. ZETIA [Concomitant]
  6. METOPROLOL SUCCINATE [Concomitant]
  7. VITAMIN CAP [Concomitant]
  8. ASPIRIN [Concomitant]
  9. COZAAR [Concomitant]
  10. FUROSEMIDE [Concomitant]
  11. ALL OTHER THERAPEUTIC PRODUCTS [Concomitant]
  12. LANTUS [Concomitant]

REACTIONS (4)
  - OEDEMA PERIPHERAL [None]
  - PAIN IN EXTREMITY [None]
  - VISION BLURRED [None]
  - WEIGHT INCREASED [None]
